FAERS Safety Report 5150526-0 (Version None)
Quarter: 2006Q4

REPORT INFORMATION
  Report Type: 
  Country: None (occurrence: None)
  Receive Date: 20061108
  Receipt Date: 20060915
  Transmission Date: 20070319
  Serious: Yes (Hospitalization)
  Sender: FDA-Public Use
  Company Number: 2004193459JP

PATIENT
  Age: 39 Year
  Sex: Male
  Weight: 101 kg

DRUGS (8)
  1. GENOTROPIN [Suspect]
     Indication: HYPOPITUITARISM
     Dosage: SEE IMAGE
     Route: 058
     Dates: start: 20030730, end: 20040113
  2. GENOTROPIN [Suspect]
     Indication: HYPOPITUITARISM
     Dosage: SEE IMAGE
     Route: 058
     Dates: start: 20040121, end: 20040304
  3. GENOTROPIN [Suspect]
     Indication: HYPOPITUITARISM
     Dosage: SEE IMAGE
     Route: 058
     Dates: start: 20040305, end: 20060731
  4. PREDNISOLONE [Concomitant]
  5. ADETPHOS (ADENOSINE TRIPHOSPHATE, DISODIUM SALT) [Concomitant]
  6. METHYCOBAL (MECOBALAMIN) [Concomitant]
  7. MUCOSTA (REBAMIPIDE) [Concomitant]
  8. FAMOTIDINE [Concomitant]

REACTIONS (3)
  - DEAFNESS UNILATERAL [None]
  - INTERVERTEBRAL DISC PROTRUSION [None]
  - SUDDEN HEARING LOSS [None]
